FAERS Safety Report 4422397-9 (Version None)
Quarter: 2004Q3

REPORT INFORMATION
  Report Type: 
  Country: None (occurrence: None)
  Receive Date: 20040810
  Receipt Date: 20040805
  Transmission Date: 20050211
  Serious: Yes (Other)
  Sender: FDA-Public Use
  Company Number: PHBS2004BR10365

PATIENT
  Age: 80 Year
  Sex: Female

DRUGS (2)
  1. LESCOL [Suspect]
     Dosage: 40 MG, UNK
     Route: 048
  2. BEZAFIBRATE [Suspect]

REACTIONS (1)
  - RENAL FAILURE [None]
